FAERS Safety Report 7498495-2 (Version None)
Quarter: 2011Q2

REPORT INFORMATION
  Report Type: 
  Country: None (occurrence: None)
  Receive Date: 20110516
  Receipt Date: 20110503
  Transmission Date: 20111010
  Serious: Yes (Hospitalization)
  Sender: FDA-Public Use
  Company Number: ACO_24123_2011

PATIENT
  Age: 46 Year
  Sex: Male

DRUGS (6)
  1. VALPROIC ACID [Suspect]
     Indication: CONVULSION
  2. TIZANIDINE HYDROCHLORIDE [Suspect]
     Indication: CLUSTER HEADACHE
     Dosage: 2 MG,
  3. METADON /00068901/(METHADONE) [Concomitant]
  4. TRAMADOL HCL [Concomitant]
  5. ADEPSIQUE (AMITRIPTYLINE HYDROCHLORIDE, DIAZEPAM, PERPHENAZINE) [Concomitant]
  6. RIVOTRIL (CLONAZEPAM) [Concomitant]

REACTIONS (11)
  - VISION BLURRED [None]
  - DISORIENTATION [None]
  - HEART RATE INCREASED [None]
  - RESPIRATORY RATE DECREASED [None]
  - OXYGEN SATURATION DECREASED [None]
  - PYREXIA [None]
  - SOMNOLENCE [None]
  - HEADACHE [None]
  - BLOOD PRESSURE DECREASED [None]
  - DRUG SCREEN POSITIVE [None]
  - VOMITING [None]
